FAERS Safety Report 18550591 (Version 1)
Quarter: 2020Q4

REPORT INFORMATION
  Report Type: Other
  Country: US (occurrence: US)
  Receive Date: 20201126
  Receipt Date: 20201126
  Transmission Date: 20210114
  Serious: Yes (Hospitalization)
  Sender: FDA-Public Use
  Company Number: US-APPCO PHARMA LLC-2096341

PATIENT
  Age: 43 Year
  Sex: Female

DRUGS (2)
  1. METRONIDAZOLE. [Suspect]
     Active Substance: METRONIDAZOLE
     Route: 042
  2. METRONIDAZOLE. [Suspect]
     Active Substance: METRONIDAZOLE
     Indication: TRICHOMONIASIS
     Route: 048

REACTIONS (7)
  - Salivary hypersecretion [Unknown]
  - Pruritus [Unknown]
  - Vomiting [Unknown]
  - Dyspnoea [Unknown]
  - Skin burning sensation [Unknown]
  - Urticaria [Unknown]
  - Feeling hot [Unknown]
